FAERS Safety Report 9422062 (Version 1)
Quarter: 2013Q3

REPORT INFORMATION
  Report Type: Spontaneous
  Country: IE (occurrence: IE)
  Receive Date: 20130726
  Receipt Date: 20130726
  Transmission Date: 20140515
  Serious: Yes (Hospitalization)
  Sender: FDA-Public Use
  Company Number: IE-AMGEN-IRLSP2013051256

PATIENT
  Age: 40 Year
  Sex: Female

DRUGS (1)
  1. VECTIBIX [Suspect]
     Indication: COLORECTAL CANCER
     Dosage: UNK UNK, TWO WEEKLY
     Route: 042
     Dates: start: 20130708

REACTIONS (4)
  - Diarrhoea [Unknown]
  - Dehydration [Unknown]
  - Rash [Unknown]
  - Blood test abnormal [Unknown]
